FAERS Safety Report 4894426-X (Version None)
Quarter: 2006Q1

REPORT INFORMATION
  Report Type: 
  Country: None (occurrence: None)
  Receive Date: 20060127
  Receipt Date: 20060118
  Transmission Date: 20060701
  Serious: Yes (Hospitalization)
  Sender: FDA-Public Use
  Company Number: FR-ABBOTT-06P-056-0322672-00

PATIENT
  Age: 70 Year
  Sex: Female

DRUGS (3)
  1. DEPAKOTE [Suspect]
     Indication: BIPOLAR DISORDER
     Route: 048
  2. BENZODIAZEPINE [Concomitant]
     Indication: DRUG USE FOR UNKNOWN INDICATION
  3. SEROTONINE-RECAPTURE INHIBITOR [Concomitant]
     Indication: DRUG USE FOR UNKNOWN INDICATION

REACTIONS (2)
  - DYSKINESIA [None]
  - EXTRAPYRAMIDAL DISORDER [None]
